FAERS Safety Report 24298456 (Version 1)
Quarter: 2024Q3

REPORT INFORMATION
  Report Type: Spontaneous
  Country: FR (occurrence: FR)
  Receive Date: 20240909
  Receipt Date: 20240909
  Transmission Date: 20241016
  Serious: Yes (Hospitalization, Other)
  Sender: DR REDDYS
  Company Number: None

PATIENT
  Age: 36 Year
  Sex: Male
  Weight: 72.9 kg

DRUGS (5)
  1. DAPTOMYCIN [Suspect]
     Active Substance: DAPTOMYCIN
     Indication: Postoperative wound infection
     Route: 042
     Dates: start: 20240619, end: 20240625
  2. BACTRIM [Suspect]
     Active Substance: SULFAMETHOXAZOLE\TRIMETHOPRIM
     Indication: Postoperative wound infection
     Dosage: BACTRIM FORTE, TABLET
     Route: 048
     Dates: start: 20240625, end: 20240628
  3. CLINDAMYCIN HYDROCHLORIDE [Concomitant]
     Active Substance: CLINDAMYCIN HYDROCHLORIDE
     Indication: Postoperative wound infection
     Route: 048
     Dates: start: 20240628, end: 20240705
  4. CEFEPIME [Concomitant]
     Active Substance: CEFEPIME HYDROCHLORIDE
     Indication: Postoperative wound infection
     Route: 042
     Dates: start: 20240619, end: 20240624
  5. CEFAZOLIN SODIUM [Concomitant]
     Active Substance: CEFAZOLIN SODIUM
     Indication: Postoperative wound infection
     Route: 042
     Dates: start: 20240708

REACTIONS (1)
  - Liver injury [Recovering/Resolving]

NARRATIVE: CASE EVENT DATE: 20240628
